FAERS Safety Report 8106691-6 (Version None)
Quarter: 2012Q1

REPORT INFORMATION
  Report Type: 
  Country: None (occurrence: None)
  Receive Date: 20120202
  Receipt Date: 20120126
  Transmission Date: 20120608
  Serious: No
  Sender: FDA-Public Use
  Company Number: US-BAYER-2011-029106

PATIENT
  Age: 42 Year
  Sex: Female

DRUGS (1)
  1. MIRENA [Suspect]
     Indication: CONTRACEPTION
     Dosage: 20 MCG/24HR, CONT
     Route: 015
     Dates: start: 20110217

REACTIONS (8)
  - MENSTRUATION IRREGULAR [None]
  - WEIGHT INCREASED [None]
  - VAGINAL HAEMORRHAGE [None]
  - STAPHYLOCOCCAL INFECTION [None]
  - VAGINAL DISCHARGE [None]
  - AMENORRHOEA [None]
  - GENITAL DISCHARGE [None]
  - ABDOMINAL DISTENSION [None]
